FAERS Safety Report 24829230 (Version 1)
Quarter: 2025Q1

REPORT INFORMATION
  Report Type: Report from Study
  Country: IN (occurrence: IN)
  Receive Date: 20250110
  Receipt Date: 20250110
  Transmission Date: 20250409
  Serious: Yes (Death)
  Sender: ROCHE
  Company Number: IN-ROCHE-10000106269

PATIENT
  Age: 52 Year
  Sex: Female

DRUGS (1)
  1. TECENTRIQ [Suspect]
     Active Substance: ATEZOLIZUMAB
     Indication: Hepatocellular carcinoma
     Dosage: FREQUENCY 1 INTERVAL 21 DAY
     Route: 042
     Dates: start: 20240817

REACTIONS (5)
  - Off label use [Unknown]
  - Neoplasm malignant [Fatal]
  - Hepatic failure [Fatal]
  - Ill-defined disorder [Fatal]
  - Swelling [Fatal]

NARRATIVE: CASE EVENT DATE: 20241229
